FAERS Safety Report 7564537-9 (Version None)
Quarter: 2011Q2

REPORT INFORMATION
  Report Type: 
  Country: None (occurrence: None)
  Receive Date: 20110622
  Receipt Date: 20100511
  Transmission Date: 20111010
  Serious: Yes (Other)
  Sender: FDA-Public Use
  Company Number: US-MYLANLABS-2010S1008501

PATIENT
  Age: 68 Year
  Sex: Male

DRUGS (7)
  1. ARICEPT [Concomitant]
  2. NAMENDA [Concomitant]
  3. PEPCID [Concomitant]
  4. CLOZAPINE [Suspect]
     Indication: SCHIZOPHRENIA
     Dates: start: 20100301, end: 20100506
  5. TYLENOL-500 [Concomitant]
  6. CLOZAPINE [Suspect]
     Dates: start: 20100301, end: 20100506
  7. LASIX [Concomitant]

REACTIONS (1)
  - LEUKOPENIA [None]
